FAERS Safety Report 17647018 (Version 3)
Quarter: 2021Q1

REPORT INFORMATION
  Report Type: Spontaneous
  Country: US (occurrence: US)
  Receive Date: 20200408
  Receipt Date: 20210227
  Transmission Date: 20210419
  Serious: No
  Sender: FDA-Public Use
  Company Number: NVSC2020US092698

PATIENT
  Sex: Female

DRUGS (1)
  1. VOTRIENT [Suspect]
     Active Substance: PAZOPANIB HYDROCHLORIDE
     Indication: CONNECTIVE TISSUE NEOPLASM
     Dosage: 800 MG, QD
     Route: 048
     Dates: start: 20200215

REACTIONS (9)
  - Limb discomfort [Unknown]
  - Fatigue [Unknown]
  - Abdominal discomfort [Unknown]
  - Excessive cerumen production [Unknown]
  - Pain in extremity [Unknown]
  - Weight increased [Unknown]
  - Hair colour changes [Unknown]
  - Somnolence [Unknown]
  - Dry skin [Unknown]
